FAERS Safety Report 8521580-0 (Version None)
Quarter: 2012Q3

REPORT INFORMATION
  Report Type: 
  Country: None (occurrence: None)
  Receive Date: 20120719
  Receipt Date: 20120713
  Transmission Date: 20120928
  Serious: Yes (Hospitalization, Other)
  Sender: FDA-Public Use
  Company Number: PHHY2012JP061179

PATIENT
  Sex: Female
  Weight: 55 kg

DRUGS (5)
  1. PREDNISOLONE SODIUM [Concomitant]
     Dosage: 10 MG, UNK
     Dates: start: 20120501, end: 20120508
  2. PREDNISOLONE [Concomitant]
     Dosage: 10 MG, UNK
     Route: 048
     Dates: start: 20120509
  3. SOLU-MEDROL [Concomitant]
     Dosage: 40 MG, UNK
     Dates: start: 20120428, end: 20120430
  4. AFINITOR [Suspect]
     Indication: PANCREATIC NEUROENDOCRINE TUMOUR
     Dosage: 10 MG, DAILY
     Route: 048
     Dates: start: 20120314, end: 20120424
  5. PROCYLIN [Concomitant]
     Dosage: 60 UG, UNK
     Route: 048
     Dates: start: 20120510, end: 20120523

REACTIONS (8)
  - PYREXIA [None]
  - OEDEMA PERIPHERAL [None]
  - DYSPNOEA [None]
  - PULMONARY HYPERTENSION [None]
  - HYPOXIA [None]
  - WHEEZING [None]
  - SINUS TACHYCARDIA [None]
  - INTERSTITIAL LUNG DISEASE [None]
